FAERS Safety Report 9097789 (Version 3)
Quarter: 2013Q3

REPORT INFORMATION
  Report Type: Spontaneous
  Country: US (occurrence: US)
  Receive Date: 20130212
  Receipt Date: 20130827
  Transmission Date: 20140515
  Serious: No
  Sender: FDA-Public Use
  Company Number: US-009507513-1302USA004306

PATIENT
  Age: 57 Year
  Sex: Female
  Weight: 78.5 kg

DRUGS (4)
  1. MIRALAX [Suspect]
     Indication: BOWEL PREPARATION
     Dosage: 17 G, QD
     Route: 048
     Dates: start: 20121219, end: 20121221
  2. MIRALAX [Suspect]
     Indication: CONSTIPATION
  3. MIRALAX [Suspect]
     Indication: MEDICAL OBSERVATION
  4. DULCOLAX [Suspect]
     Indication: CONSTIPATION
     Dosage: UNK, UNKNOWN

REACTIONS (2)
  - Constipation [Recovered/Resolved]
  - Faecaloma [Recovered/Resolved]
